FAERS Safety Report 4303773-1 (Version None)
Quarter: 2004Q1

REPORT INFORMATION
  Report Type: 
  Country: None (occurrence: None)
  Receive Date: 20040225
  Receipt Date: 20040119
  Transmission Date: 20041129
  Serious: Yes (Hospitalization)
  Sender: FDA-Public Use
  Company Number: PHHO2004DE01078

PATIENT
  Age: 62 Year
  Sex: Male

DRUGS (3)
  1. PKC412 [Concomitant]
     Indication: GASTROINTESTINAL STROMAL TUMOUR
     Dosage: 100 MG, BID
     Route: 048
     Dates: start: 20031226, end: 20040122
  2. GLEEVEC [Suspect]
     Indication: GASTROINTESTINAL STROMAL TUMOUR
     Dosage: 100 MG, 6QD
     Route: 048
     Dates: start: 20031220, end: 20040122
  3. GLEEVEC [Suspect]
     Route: 048

REACTIONS (12)
  - ABDOMINAL PAIN [None]
  - CLOSTRIDIAL INFECTION [None]
  - DIARRHOEA [None]
  - FATIGUE [None]
  - HYPERGLYCAEMIA [None]
  - HYPERTHYROIDISM [None]
  - HYPOKALAEMIA [None]
  - INFECTION [None]
  - MALIGNANT NEOPLASM PROGRESSION [None]
  - NAUSEA [None]
  - PYREXIA [None]
  - VOMITING [None]
